FAERS Safety Report 10215434 (Version 2)
Quarter: 2014Q2

REPORT INFORMATION
  Report Type: Spontaneous
  Country: US (occurrence: US)
  Receive Date: 20140604
  Receipt Date: 20140624
  Transmission Date: 20141212
  Serious: No
  Sender: FDA-Public Use
  Company Number: US-JNJFOC-20140513782

PATIENT
  Sex: Female
  Weight: 68.04 kg

DRUGS (13)
  1. DURAGESIC [Suspect]
     Indication: MALIGNANT HYPERTENSION
     Route: 062
     Dates: start: 1997
  2. DURAGESIC [Suspect]
     Indication: MALIGNANT HYPERTENSION
     Route: 062
  3. PHENERGAN [Suspect]
     Indication: GASTRIC DISORDER
     Route: 065
     Dates: start: 2003
  4. CATAPRES [Concomitant]
     Indication: BLOOD PRESSURE
     Route: 062
     Dates: start: 1997
  5. NIFEDIPINE [Concomitant]
     Indication: BLOOD PRESSURE
     Route: 048
     Dates: start: 1993
  6. BENTYL [Concomitant]
     Indication: BLOOD PRESSURE
     Route: 048
     Dates: start: 1993
  7. REGLAN [Concomitant]
     Indication: GASTRIC DISORDER
     Route: 048
     Dates: start: 1997
  8. NEXIUM [Concomitant]
     Indication: GASTRIC DISORDER
     Route: 048
     Dates: start: 1997
  9. ZOFRAN [Concomitant]
     Indication: GASTRIC DISORDER
     Route: 048
  10. DIAZEPAM [Concomitant]
     Indication: BLOOD PRESSURE
     Route: 048
     Dates: start: 1993
  11. CRESTOR [Concomitant]
     Indication: LIPIDS ABNORMAL
     Route: 048
     Dates: start: 1997
  12. LASIX [Concomitant]
     Indication: MALIGNANT HYPERTENSION
     Route: 065
  13. BACLOFEN [Concomitant]
     Indication: PRODUCT USED FOR UNKNOWN INDICATION
     Route: 065

REACTIONS (6)
  - Withdrawal syndrome [Not Recovered/Not Resolved]
  - Drug dose omission [Unknown]
  - Off label use [Not Recovered/Not Resolved]
  - Wrong technique in drug usage process [Unknown]
  - Wrong technique in drug usage process [Unknown]
  - Product adhesion issue [Unknown]
